FAERS Safety Report 9588643 (Version 1)
Quarter: 2013Q4

REPORT INFORMATION
  Report Type: Spontaneous
  Country: US (occurrence: US)
  Receive Date: 20131003
  Receipt Date: 20131003
  Transmission Date: 20140711
  Serious: No
  Sender: FDA-Public Use
  Company Number: US-AMGEN-USASP2012065316

PATIENT
  Sex: Female

DRUGS (12)
  1. ENBREL [Suspect]
     Indication: PSORIATIC ARTHROPATHY
     Dosage: 50 MG, QWK
     Route: 058
  2. NAPROSYN                           /00256201/ [Concomitant]
     Dosage: 375 MG, UNK
  3. PROTONIX [Concomitant]
     Dosage: 20 MG, UNK
  4. AZULFIDINE [Concomitant]
     Dosage: 500 MG, UNK
  5. PAXIL [Concomitant]
     Dosage: 10 MG, UNK
  6. ULTRAM [Concomitant]
     Dosage: 50 MG, UNK
  7. METHOTREXATE [Concomitant]
     Dosage: 2.5 MG, UNK
  8. LYRICA [Concomitant]
     Dosage: 100 MG, UNK
  9. IBUPROFEN [Concomitant]
     Dosage: 200 MG, UNK
  10. SKELAXIN                           /00611501/ [Concomitant]
     Dosage: 800 MG, UNK
  11. FOLIC ACID [Concomitant]
     Dosage: UNK
  12. ADIPEX-P [Concomitant]
     Dosage: 37.5 MG, UNK

REACTIONS (2)
  - Injection site mass [Unknown]
  - Wound [Unknown]
